FAERS Safety Report 7531599-4 (Version None)
Quarter: 2011Q2

REPORT INFORMATION
  Report Type: 
  Country: None (occurrence: None)
  Receive Date: 20110608
  Receipt Date: 20110531
  Transmission Date: 20111010
  Serious: Yes (Hospitalization)
  Sender: FDA-Public Use
  Company Number: US-BAXTER-2011BH005192

PATIENT
  Age: 80 Year
  Sex: Male
  Weight: 79 kg

DRUGS (4)
  1. DIANEAL [Suspect]
     Indication: PERITONEAL DIALYSIS
     Route: 033
     Dates: end: 20110201
  2. DIANEAL [Suspect]
     Route: 033
     Dates: start: 20110315
  3. DIANEAL [Suspect]
     Route: 033
     Dates: start: 20110315
  4. DIANEAL [Suspect]
     Indication: PERITONEAL DIALYSIS
     Route: 033
     Dates: end: 20110201

REACTIONS (2)
  - AORTIC ANEURYSM [None]
  - INGUINAL HERNIA [None]
